FAERS Safety Report 19509205 (Version 1)
Quarter: 2021Q3

REPORT INFORMATION
  Report Type: Report from Study
  Country: US (occurrence: US)
  Receive Date: 20210709
  Receipt Date: 20210709
  Transmission Date: 20211014
  Serious: Yes (Other)
  Sender: FDA-Public Use
  Company Number: US-BEH-2021133645

PATIENT
  Age: 60 Year
  Sex: Female
  Weight: 81.63 kg

DRUGS (3)
  1. CLONIDINE. [Concomitant]
     Active Substance: CLONIDINE
     Indication: ANXIETY
  2. CLONIDINE. [Concomitant]
     Active Substance: CLONIDINE
     Indication: ANGINA UNSTABLE
     Dosage: 0.2 MILLIGRAM
     Route: 048
     Dates: start: 20210703
  3. HIZENTRA [Suspect]
     Active Substance: HUMAN IMMUNOGLOBULIN G
     Indication: CHRONIC INFLAMMATORY DEMYELINATING POLYRADICULONEUROPATHY
     Dosage: 20 GRAM, QW
     Route: 058
     Dates: start: 20210703, end: 20210703

REACTIONS (5)
  - Blood pressure increased [Unknown]
  - Chest discomfort [Unknown]
  - Pulse pressure decreased [Unknown]
  - Tachycardia [Unknown]
  - Angina unstable [Unknown]

NARRATIVE: CASE EVENT DATE: 20210703
